FAERS Safety Report 11334631 (Version 2)
Quarter: 2015Q3

REPORT INFORMATION
  Report Type: Spontaneous
  Country: US (occurrence: US)
  Receive Date: 20150804
  Receipt Date: 20150813
  Transmission Date: 20151125
  Serious: No
  Sender: FDA-Public Use
  Company Number: US-ASTRAZENECA-2014SE91678

PATIENT
  Age: 69 Year
  Sex: Male
  Weight: 71.6 kg

DRUGS (4)
  1. SOMETHING FOR HIS CHOLESTEROL [Concomitant]
     Indication: BLOOD CHOLESTEROL INCREASED
  2. LISINOPRIL. [Suspect]
     Active Substance: LISINOPRIL
     Route: 048
  3. FARXIGA [Suspect]
     Active Substance: DAPAGLIFLOZIN PROPANEDIOL
     Indication: TYPE 2 DIABETES MELLITUS
     Route: 048
     Dates: start: 2014
  4. SOMETHING FOR HIS BLOOD PRESSURE [Concomitant]
     Indication: HYPERTENSION

REACTIONS (4)
  - Rash [Not Recovered/Not Resolved]
  - Mouth swelling [Recovered/Resolved]
  - Swelling face [Recovered/Resolved]
  - Urticaria [Recovered/Resolved]

NARRATIVE: CASE EVENT DATE: 2014
